FAERS Safety Report 12924977 (Version 1)
Quarter: 2016Q4

REPORT INFORMATION
  Report Type: Report from Study
  Country: US (occurrence: US)
  Receive Date: 20161108
  Receipt Date: 20161108
  Transmission Date: 20170207
  Serious: Yes (Hospitalization)
  Sender: FDA-Public Use
  Company Number: US-SA-2016SA202561

PATIENT
  Age: 69 Year
  Sex: Female

DRUGS (1)
  1. CAPRELSA [Suspect]
     Active Substance: VANDETANIB
     Indication: THYROID CANCER
     Route: 048
     Dates: start: 20161013

REACTIONS (3)
  - Diarrhoea [Recovering/Resolving]
  - Photophobia [Recovering/Resolving]
  - Dehydration [Recovering/Resolving]

NARRATIVE: CASE EVENT DATE: 201610
